FAERS Safety Report 25537888 (Version 1)
Quarter: 2025Q3

REPORT INFORMATION
  Report Type: Spontaneous
  Country: EU (occurrence: EU)
  Receive Date: 20250710
  Receipt Date: 20250710
  Transmission Date: 20251021
  Serious: Yes (Hospitalization, Other)
  Sender: BAXTER
  Company Number: None

PATIENT
  Age: 58 Year
  Sex: Female
  Weight: 52.9 kg

DRUGS (27)
  1. CYCLOPHOSPHAMIDE [Suspect]
     Active Substance: CYCLOPHOSPHAMIDE
     Indication: Diffuse large B-cell lymphoma
     Dosage: 750 MG/M2, EVERY 3 WK, R-CHOP, INFUSION
     Route: 042
     Dates: start: 20220603
  2. DOXORUBICIN [Suspect]
     Active Substance: DOXORUBICIN
     Indication: Diffuse large B-cell lymphoma
     Dosage: 50 MG/M2, EVERY 3 WK, REGIMEN #1R-CHOP, SOLUTION FOR INJECTION
     Route: 042
     Dates: start: 20220603
  3. LENALIDOMIDE [Suspect]
     Active Substance: LENALIDOMIDE
     Indication: Diffuse large B-cell lymphoma
     Route: 048
     Dates: start: 20220831
  4. PREDNISOLONE [Suspect]
     Active Substance: PREDNISOLONE
     Indication: Diffuse large B-cell lymphoma
     Dosage: 100 MG, EVERY 3 WK, REGIMEN #1R-CHOP
     Route: 042
     Dates: start: 20220603
  5. RITUXIMAB [Suspect]
     Active Substance: RITUXIMAB
     Indication: Diffuse large B-cell lymphoma
     Dosage: 375 MG/M2, EVERY 3 WK, R-CHOP
     Route: 042
     Dates: start: 20220603
  6. TAFASITAMAB [Suspect]
     Active Substance: TAFASITAMAB
     Indication: Diffuse large B-cell lymphoma
     Route: 065
     Dates: start: 20220603, end: 20220817
  7. TAFASITAMAB [Suspect]
     Active Substance: TAFASITAMAB
     Route: 065
     Dates: start: 20220824
  8. VINCRISTINE [Suspect]
     Active Substance: VINCRISTINE
     Indication: Diffuse large B-cell lymphoma
     Dosage: 1.3 MG/M2, EVERY 3 WK, REGIMEN #1R-CHOP
     Route: 042
     Dates: start: 20220603
  9. Akynzeo [Concomitant]
     Dates: start: 20220601
  10. ERYTHROPOIETIN [Concomitant]
     Active Substance: ERYTHROPOIETIN
     Dates: start: 20220707
  11. BISOPROLOL FUMARATE [Concomitant]
     Active Substance: BISOPROLOL FUMARATE
     Dates: start: 20220606
  12. Glandomed [Concomitant]
     Dates: start: 20220610
  13. IMODIUM [Concomitant]
     Active Substance: LOPERAMIDE HYDROCHLORIDE
     Dates: start: 20220530
  14. Laxogol [Concomitant]
     Dates: start: 20220607
  15. Lidaprim [Concomitant]
     Dates: start: 20220601
  16. MAGNESIUM [Concomitant]
     Active Substance: MAGNESIUM
     Dates: start: 20220726
  17. ONDANSETRON HYDROCHLORIDE [Concomitant]
     Active Substance: ONDANSETRON HYDROCHLORIDE
     Dates: start: 20220607
  18. Ovestinon [Concomitant]
     Dates: start: 20220530
  19. PANTOPRAZOLE SODIUM [Concomitant]
     Active Substance: PANTOPRAZOLE SODIUM
     Dates: start: 20220530
  20. ACETAMINOPHEN [Concomitant]
     Active Substance: ACETAMINOPHEN
     Dates: start: 20220602
  21. Paspertin [Concomitant]
     Dates: start: 20220607
  22. Passedan [Concomitant]
     Dates: start: 20220530
  23. DEXIBUPROFEN [Concomitant]
     Active Substance: DEXIBUPROFEN
     Dates: start: 20220530
  24. ASPIRIN [Concomitant]
     Active Substance: ASPIRIN
     Dates: start: 20220601
  25. TRAZODONE HYDROCHLORIDE [Concomitant]
     Active Substance: TRAZODONE HYDROCHLORIDE
     Dates: start: 20220817
  26. VALACYCLOVIR HYDROCHLORIDE [Concomitant]
     Active Substance: VALACYCLOVIR HYDROCHLORIDE
     Dates: start: 20220531
  27. ZYPREXA [Concomitant]
     Active Substance: OLANZAPINE
     Dates: start: 20220603

REACTIONS (2)
  - Bacterial infection [Recovered/Resolved]
  - Neutropenia [Recovered/Resolved]

NARRATIVE: CASE EVENT DATE: 20220818
